FAERS Safety Report 6507831-2 (Version None)
Quarter: 2009Q4

REPORT INFORMATION
  Report Type: 
  Country: None (occurrence: None)
  Receive Date: 20091221
  Receipt Date: 20091210
  Transmission Date: 20100525
  Serious: Yes (Life-Threatening)
  Sender: FDA-Public Use
  Company Number: A0804174D

PATIENT
  Sex: Male
  Weight: 76 kg

DRUGS (10)
  1. ELTROMBOPAG [Suspect]
     Indication: THROMBOCYTOPENIA
     Route: 048
     Dates: start: 20090617
  2. ELTROMBOPAG [Suspect]
     Dosage: 25MG PER DAY
     Route: 048
     Dates: start: 20090529, end: 20090616
  3. PEGASYS [Suspect]
     Dosage: 180MCG WEEKLY
     Route: 042
     Dates: start: 20090617
  4. COPEGUS [Suspect]
     Route: 048
     Dates: start: 20090617
  5. SPIRIVA [Concomitant]
     Indication: ASTHMA
     Dosage: 1PUFF PER DAY
     Route: 055
  6. SYMBICORT [Concomitant]
     Indication: ASTHMA
     Dosage: 1PUFF PER DAY
     Route: 055
  7. ZOLOFT [Concomitant]
     Indication: DEPRESSION
     Dosage: 50MG PER DAY
     Route: 048
  8. LEXOMIL [Concomitant]
     Route: 048
  9. SUBUTEX [Concomitant]
     Indication: DRUG DEPENDENCE
     Dosage: 2MG PER DAY
     Route: 048
  10. TERCIAN [Concomitant]
     Dosage: 12.5MG TWICE PER DAY
     Route: 048

REACTIONS (1)
  - EPISTAXIS [None]
